FAERS Safety Report 6381714-3 (Version None)
Quarter: 2009Q3

REPORT INFORMATION
  Report Type: 
  Country: None (occurrence: None)
  Receive Date: 20090930
  Receipt Date: 20090918
  Transmission Date: 20100115
  Serious: Yes (Other)
  Sender: FDA-Public Use
  Company Number: PHEH2009US11301

PATIENT
  Age: 69 Year

DRUGS (1)
  1. EXELON [Suspect]
     Dosage: UNK, UNK
     Route: 062

REACTIONS (4)
  - CEREBRAL INFARCTION [None]
  - DIZZINESS [None]
  - MEMORY IMPAIRMENT [None]
  - MENTAL IMPAIRMENT [None]
